FAERS Safety Report 9641881 (Version 2)
Quarter: 2013Q4

REPORT INFORMATION
  Report Type: Report from Study
  Country: CA (occurrence: CA)
  Receive Date: 20131023
  Receipt Date: 20131223
  Transmission Date: 20140711
  Serious: Yes (Hospitalization)
  Sender: FDA-Public Use
  Company Number: CA-ROCHE-1287437

PATIENT
  Age: 76 Year
  Sex: Female
  Weight: 57.8 kg

DRUGS (17)
  1. VEMURAFENIB [Suspect]
     Indication: MALIGNANT MELANOMA
     Dosage: LAST DOSE PRIOR TO SAE: 24/SEP/2013
     Route: 048
     Dates: start: 20130815
  2. SYNTHROID [Concomitant]
     Indication: HYPOTHYROIDISM
     Route: 048
     Dates: start: 1977
  3. COVERSYL [Concomitant]
     Indication: HYPERTENSION
     Route: 048
     Dates: start: 2004
  4. PREDNISONE [Concomitant]
     Indication: RASH
     Route: 048
     Dates: start: 20130826, end: 20130905
  5. PREDNISONE [Concomitant]
     Indication: NAUSEA
  6. ONDANSETRON [Concomitant]
     Indication: NAUSEA
     Route: 048
     Dates: start: 20130826
  7. TYLENOL [Concomitant]
     Indication: PAIN
     Route: 048
     Dates: start: 20130901
  8. TYLENOL [Concomitant]
     Indication: ARTHRALGIA
  9. NAPROXEN SODIUM [Concomitant]
     Indication: ARTHRALGIA
     Dosage: DRUG REPORTED AS : ALEVE
     Route: 048
     Dates: start: 20130908
  10. HYDROMORPHONE [Concomitant]
     Indication: CHEST PAIN
     Route: 048
     Dates: start: 20130917, end: 20130930
  11. HYDROMORPHONE [Concomitant]
     Indication: CHEST PAIN
     Route: 042
     Dates: start: 20130930, end: 20130930
  12. KETOROLAC [Concomitant]
     Indication: CHEST PAIN
     Route: 042
     Dates: start: 20130930, end: 20130930
  13. SOLU-MEDROL [Concomitant]
     Indication: CHEST PAIN
     Route: 042
     Dates: start: 20130930, end: 20130930
  14. DEXAMETHASONE [Concomitant]
     Indication: ARTHRALGIA
     Route: 048
     Dates: start: 20130911, end: 20130915
  15. DEXAMETHASONE [Concomitant]
     Indication: PAIN
     Route: 048
     Dates: start: 20130918, end: 20130923
  16. DEXAMETHASONE [Concomitant]
     Indication: CHEST PAIN
     Route: 048
     Dates: start: 20130925, end: 20130927
  17. COBIMETINIB [Suspect]
     Indication: MALIGNANT MELANOMA
     Dosage: LAST DOSE PRIOR TO SAE: 23/AUG/2013
     Route: 048
     Dates: start: 20130815

REACTIONS (1)
  - Pulmonary embolism [Recovered/Resolved]
